FAERS Safety Report 5866939-5 (Version None)
Quarter: 2008Q3

REPORT INFORMATION
  Report Type: 
  Country: None (occurrence: None)
  Receive Date: 20080827
  Receipt Date: 20080813
  Transmission Date: 20090109
  Serious: Yes (Hospitalization)
  Sender: FDA-Public Use
  Company Number: 1000000624

PATIENT
  Age: 69 Year
  Sex: Male

DRUGS (7)
  1. CITALOPRAM HYDROBROMIDE [Suspect]
     Dosage: 20 MG (20 MG, 1 IN 1 D) , ORAL
     Route: 048
  2. FRAXIPARINE [Suspect]
     Indication: DIALYSIS
     Dosage: 542.8571 IU (3800 IU, 1 IN 1 WK) ,INTRA-ARTERIAL
     Route: 013
  3. LASILIX (500 MILLIGRAM, TABLETS) [Suspect]
     Dosage: 500 MG (500 MG, 1 IN 1 D), ORAL
     Route: 048
  4. KARDEGIC (160 MILLIGRAM, POWDER) [Suspect]
     Dosage: 160 MG (160 MG, 1 IN 1 D) ,ORAL
     Route: 048
  5. SELOKEN (100 MILLIGRAM, TABLETS) [Suspect]
     Dosage: 100 MG (100 MG, 1 IN 1 D), ORAL
     Route: 048
  6. MOPRAL (10 MILLIGRAM, TABLETS) [Suspect]
     Dosage: 10 MG (10 MG, 1 IN 1 D), ORAL
     Route: 048
  7. LESCOL [Suspect]
     Dosage: 20 MG (20 MG, 1 IN 1 D), ORAL
     Route: 048

REACTIONS (7)
  - ABDOMINAL PAIN [None]
  - BLOOD BILIRUBIN INCREASED [None]
  - BLOOD CREATININE INCREASED [None]
  - COOMBS DIRECT TEST POSITIVE [None]
  - HYPERTENSION [None]
  - INTRAVASCULAR HAEMOLYSIS [None]
  - WHITE BLOOD CELL COUNT INCREASED [None]
